FAERS Safety Report 20128386 (Version 1)
Quarter: 2021Q4

REPORT INFORMATION
  Report Type: Spontaneous
  Country: JP (occurrence: JP)
  Receive Date: 20211130
  Receipt Date: 20211130
  Transmission Date: 20220304
  Serious: Yes (Death, Hospitalization)
  Sender: FDA-Public Use
  Company Number: JP-ASTELLAS-2021JP019528

PATIENT
  Age: 56 Year
  Sex: Male

DRUGS (1)
  1. TACROLIMUS [Suspect]
     Active Substance: TACROLIMUS
     Indication: Prophylaxis against transplant rejection
     Dosage: 0.5 MG/DAY, UNKNOWN FREQ.
     Route: 048

REACTIONS (1)
  - Sinusitis [Fatal]

NARRATIVE: CASE EVENT DATE: 20211008
